FAERS Safety Report 12784946 (Version 1)
Quarter: 2016Q3

REPORT INFORMATION
  Report Type: Spontaneous
  Country: US (occurrence: US)
  Receive Date: 20160927
  Receipt Date: 20160927
  Transmission Date: 20161109
  Serious: No
  Sender: FDA-Public Use
  Company Number: US-IGSA-GTI003386

PATIENT
  Age: 41 Year
  Sex: Male
  Weight: 139 kg

DRUGS (22)
  1. OXYCODONE [Concomitant]
     Active Substance: OXYCODONE
  2. SPIRIVA [Concomitant]
     Active Substance: TIOTROPIUM BROMIDE MONOHYDRATE
     Route: 055
  3. LORATADINE. [Concomitant]
     Active Substance: LORATADINE
  4. OXYGEN. [Concomitant]
     Active Substance: OXYGEN
  5. TESTOSTERONE. [Concomitant]
     Active Substance: TESTOSTERONE
     Route: 030
  6. PROLASTIN-C [Suspect]
     Active Substance: .ALPHA.1-PROTEINASE INHIBITOR HUMAN
     Indication: ALPHA-1 ANTI-TRYPSIN DEFICIENCY
     Route: 042
     Dates: start: 20150710
  7. BENAZEPRIL [Concomitant]
     Active Substance: BENAZEPRIL HYDROCHLORIDE
  8. NORTRIPTYLINE [Concomitant]
     Active Substance: NORTRIPTYLINE
  9. METOPROLOL. [Concomitant]
     Active Substance: METOPROLOL
  10. LASIX [Concomitant]
     Active Substance: FUROSEMIDE
  11. LEVOTHYROXINE. [Concomitant]
     Active Substance: LEVOTHYROXINE
  12. ATORVASTATIN [Concomitant]
     Active Substance: ATORVASTATIN
  13. PRILOSEC [Concomitant]
     Active Substance: OMEPRAZOLE MAGNESIUM
  14. ALBUTEROL /00139501/ [Concomitant]
     Active Substance: ALBUTEROL
     Route: 055
  15. BUMEX [Concomitant]
     Active Substance: BUMETANIDE
  16. FLUTICASONE PROPIONATE W/FORMOTEROL FUMARATE [Concomitant]
  17. PROLASTIN-C [Suspect]
     Active Substance: .ALPHA.1-PROTEINASE INHIBITOR HUMAN
     Indication: ALPHA-1 ANTI-TRYPSIN DEFICIENCY
     Route: 042
     Dates: start: 20150717
  18. PREDNISONE. [Concomitant]
     Active Substance: PREDNISONE
  19. BACLOFEN. [Concomitant]
     Active Substance: BACLOFEN
  20. BACLOFEN. [Concomitant]
     Active Substance: BACLOFEN
     Dosage: DOSE UNIT:10
  21. GABAPENTIN. [Concomitant]
     Active Substance: GABAPENTIN
  22. METHADONE [Concomitant]
     Active Substance: METHADONE HYDROCHLORIDE

REACTIONS (3)
  - Dyspnoea [Not Recovered/Not Resolved]
  - Asthma [Recovering/Resolving]
  - Dizziness [Not Recovered/Not Resolved]

NARRATIVE: CASE EVENT DATE: 20150710
